FAERS Safety Report 10264020 (Version 1)
Quarter: 2014Q2

REPORT INFORMATION
  Report Type: Report from Study
  Country: US (occurrence: US)
  Receive Date: 20140627
  Receipt Date: 20140627
  Transmission Date: 20141212
  Serious: Yes (Hospitalization, Other)
  Sender: FDA-Public Use
  Company Number: US-BIOGENIDEC-2014BI060893

PATIENT
  Sex: Female

DRUGS (1)
  1. AVONEX [Suspect]
     Indication: MULTIPLE SCLEROSIS
     Route: 030

REACTIONS (14)
  - Cerebrovascular accident [Recovered/Resolved]
  - Diabetes mellitus [Recovered/Resolved]
  - Convulsion [Recovered/Resolved]
  - Multiple sclerosis relapse [Recovered/Resolved]
  - Influenza [Recovered/Resolved]
  - Ill-defined disorder [Unknown]
  - Pneumonia [Recovered/Resolved]
  - Fall [Recovered/Resolved]
  - Head injury [Unknown]
  - Visual acuity reduced [Not Recovered/Not Resolved]
  - Colour blindness [Not Recovered/Not Resolved]
  - Blindness [Not Recovered/Not Resolved]
  - Hypoaesthesia [Not Recovered/Not Resolved]
  - Drug ineffective [Unknown]
